FAERS Safety Report 6617062-3 (Version None)
Quarter: 2010Q1

REPORT INFORMATION
  Report Type: 
  Country: None (occurrence: None)
  Receive Date: 20100307
  Receipt Date: 20100222
  Transmission Date: 20100710
  Serious: Yes (Other)
  Sender: FDA-Public Use
  Company Number: FR-ELI_LILLY_AND_COMPANY-FR201002005819

PATIENT
  Age: 28 Year
  Sex: Female

DRUGS (5)
  1. CYMBALTA [Suspect]
     Indication: PAIN
     Dosage: 120 MG, DAILY (1/D)
     Route: 048
     Dates: start: 20100121, end: 20100222
  2. IXPRIM [Concomitant]
     Dosage: UNK, UNKNOWN
     Route: 048
  3. RIVOTRIL [Concomitant]
     Dosage: UNK, UNKNOWN
     Route: 048
  4. LYRICA [Concomitant]
     Dosage: UNK, UNKNOWN
     Route: 048
  5. TRAMADOL HYDROCHLORIDE [Concomitant]
     Dosage: UNK, UNKNOWN
     Route: 048

REACTIONS (1)
  - ALOPECIA TOTALIS [None]
